FAERS Safety Report 16073706 (Version 4)
Quarter: 2022Q2

REPORT INFORMATION
  Report Type: Spontaneous
  Country: US (occurrence: None)
  Receive Date: 20190314
  Receipt Date: 20220413
  Transmission Date: 20220721
  Serious: Yes (Other)
  Sender: FDA-Public Use
  Company Number: 2019SE11950

PATIENT
  Age: 19544 Day
  Sex: Female

DRUGS (36)
  1. PRILOSEC [Suspect]
     Active Substance: OMEPRAZOLE MAGNESIUM
     Route: 048
     Dates: start: 2001, end: 2016
  2. PRILOSEC [Suspect]
     Active Substance: OMEPRAZOLE MAGNESIUM
     Route: 048
     Dates: start: 19911101, end: 2003
  3. PRILOSEC [Suspect]
     Active Substance: OMEPRAZOLE MAGNESIUM
     Route: 048
     Dates: start: 199111, end: 2016
  4. PRILOSEC OTC [Suspect]
     Active Substance: OMEPRAZOLE MAGNESIUM
     Route: 048
     Dates: start: 2001, end: 2016
  5. PRILOSEC OTC [Suspect]
     Active Substance: OMEPRAZOLE MAGNESIUM
     Route: 048
     Dates: start: 199111, end: 2016
  6. PREVACID [Suspect]
     Active Substance: LANSOPRAZOLE
     Route: 065
     Dates: start: 199111, end: 2016
  7. PREVACID 24 HR [Suspect]
     Active Substance: LANSOPRAZOLE
     Route: 065
     Dates: start: 2001, end: 2016
  8. PREVACID 24 HR [Suspect]
     Active Substance: LANSOPRAZOLE
     Route: 065
     Dates: start: 2009
  9. PREVACID 24 HR [Suspect]
     Active Substance: LANSOPRAZOLE
     Route: 065
     Dates: start: 199111, end: 2016
  10. ALPRAZOLAM [Concomitant]
     Active Substance: ALPRAZOLAM
  11. COLESTIPOL [Concomitant]
     Active Substance: COLESTIPOL
  12. FLEXERIL [Concomitant]
     Active Substance: CYCLOBENZAPRINE HYDROCHLORIDE
  13. LOMOTIL [Concomitant]
     Active Substance: ATROPINE SULFATE\DIPHENOXYLATE HYDROCHLORIDE
  14. FLONASE [Concomitant]
     Active Substance: FLUTICASONE PROPIONATE
  15. GENTAMICIN [Concomitant]
     Active Substance: GENTAMICIN
  16. SIMVASTATIN [Concomitant]
     Active Substance: SIMVASTATIN
  17. AMITRIPTYLINE [Concomitant]
     Active Substance: AMITRIPTYLINE
  18. ZOLPIDEM [Concomitant]
     Active Substance: ZOLPIDEM TARTRATE
  19. LANTUS [Concomitant]
     Active Substance: INSULIN GLARGINE
  20. NOVOLOG [Concomitant]
     Active Substance: INSULIN ASPART
  21. MESALAMINE [Concomitant]
     Active Substance: MESALAMINE
  22. FLUVIRIN NOS [Concomitant]
     Active Substance: INFLUENZA VIRUS VACCINE
  23. DOXYCYCLINE [Concomitant]
     Active Substance: DOXYCYCLINE
  24. VICTOZA [Concomitant]
     Active Substance: LIRAGLUTIDE
  25. MORPHINE [Concomitant]
     Active Substance: MORPHINE
  26. METFORMIN [Concomitant]
     Active Substance: METFORMIN HYDROCHLORIDE
  27. FUROSEMIDE [Concomitant]
     Active Substance: FUROSEMIDE
  28. ASACOL [Concomitant]
     Active Substance: MESALAMINE
  29. GLIMEPIRIDE [Concomitant]
     Active Substance: GLIMEPIRIDE
  30. TRAMADOL [Concomitant]
     Active Substance: TRAMADOL
  31. JANUVIA [Concomitant]
     Active Substance: SITAGLIPTIN PHOSPHATE
  32. VITAMINS [Concomitant]
     Active Substance: VITAMINS
  33. ONDANSETRON [Concomitant]
     Active Substance: ONDANSETRON
  34. LOPERAMIDE [Concomitant]
     Active Substance: LOPERAMIDE
  35. ASPIRIN [Concomitant]
     Active Substance: ASPIRIN
  36. CYCLOBENZAPRINE [Concomitant]
     Active Substance: CYCLOBENZAPRINE

REACTIONS (7)
  - Acute kidney injury [Unknown]
  - Chronic kidney disease [Unknown]
  - Renal injury [Unknown]
  - Renal failure [Unknown]
  - End stage renal disease [Unknown]
  - Tubulointerstitial nephritis [Unknown]
  - Dyspepsia [Unknown]

NARRATIVE: CASE EVENT DATE: 20160601
